FAERS Safety Report 7042852-5 (Version None)
Quarter: 2010Q4

REPORT INFORMATION
  Report Type: 
  Country: None (occurrence: None)
  Receive Date: 20101013
  Receipt Date: 20100203
  Transmission Date: 20110411
  Serious: No
  Sender: FDA-Public Use
  Company Number: US-ASTRAZENECA-2010SE04975

PATIENT
  Age: 68 Year
  Sex: Female

DRUGS (1)
  1. SYMBICORT [Suspect]
     Indication: PULMONARY FUNCTION TEST DECREASED
     Dosage: 320 MCG BID
     Route: 055
     Dates: start: 20100101

REACTIONS (2)
  - FEELING JITTERY [None]
  - UPPER-AIRWAY COUGH SYNDROME [None]
